FAERS Safety Report 13867250 (Version 1)
Quarter: 2017Q3

REPORT INFORMATION
  Report Type: Spontaneous
  Country: US (occurrence: None)
  Receive Date: 20170814
  Receipt Date: 20170814
  Transmission Date: 20171127
  Serious: No
  Sender: FDA-Public Use
  Company Number: None

PATIENT
  Sex: Female

DRUGS (1)
  1. JAKAFI [Suspect]
     Active Substance: RUXOLITINIB
     Indication: MYELOPROLIFERATIVE NEOPLASM
     Dosage: 10 MG QAM AND 20 MG QPM DAILY PO
     Route: 048
     Dates: start: 201611

REACTIONS (4)
  - Weight increased [None]
  - Muscle spasms [None]
  - Amnesia [None]
  - Fatigue [None]
